FAERS Safety Report 6083028-8 (Version None)
Quarter: 2009Q1

REPORT INFORMATION
  Report Type: 
  Country: None (occurrence: None)
  Receive Date: 20090218
  Receipt Date: 20090209
  Transmission Date: 20090719
  Serious: Yes (Hospitalization)
  Sender: FDA-Public Use
  Company Number: US-AMGEN-QUU332990

PATIENT
  Sex: Female

DRUGS (2)
  1. ENBREL [Suspect]
     Indication: PSORIATIC ARTHROPATHY
  2. ADALIMUMAB [Concomitant]
     Route: 058

REACTIONS (3)
  - FATIGUE [None]
  - HEPATIC ENZYME INCREASED [None]
  - VOMITING [None]
